FAERS Safety Report 4309646-2 (Version None)
Quarter: 2004Q1

REPORT INFORMATION
  Report Type: 
  Country: None (occurrence: None)
  Receive Date: 20040301
  Receipt Date: 20040125
  Transmission Date: 20041129
  Serious: Yes (Other)
  Sender: FDA-Public Use
  Company Number: A03200400224

PATIENT
  Age: 82 Year
  Sex: Male
  Weight: 87.0906 kg

DRUGS (3)
  1. UROXATRAL [Suspect]
     Indication: BENIGN PROSTATIC HYPERPLASIA
     Dosage: ORAL
     Route: 048
     Dates: start: 20031215, end: 20031228
  2. FINASTERIDE [Concomitant]
  3. GALANTAMINE [Concomitant]

REACTIONS (1)
  - URINARY RETENTION [None]
